FAERS Safety Report 4664311-7 (Version None)
Quarter: 2005Q2

REPORT INFORMATION
  Report Type: 
  Country: None (occurrence: None)
  Receive Date: 20050516
  Receipt Date: 20050516
  Transmission Date: 20051028
  Serious: Yes (Hospitalization)
  Sender: FDA-Public Use
  Company Number: None

PATIENT
  Age: 20 Year
  Sex: Female
  Weight: 72.5755 kg

DRUGS (1)
  1. NUVARING [Suspect]
     Indication: CONTRACEPTION
     Dosage: VAGINAL   3 WEEKS PTA
     Route: 067

REACTIONS (2)
  - CHEST PAIN [None]
  - DYSPNOEA [None]
